FAERS Safety Report 9365637 (Version 1)
Quarter: 2013Q2

REPORT INFORMATION
  Report Type: Spontaneous
  Country: US (occurrence: None)
  Receive Date: 20130624
  Receipt Date: 20130624
  Transmission Date: 20140414
  Serious: Yes (Life-Threatening)
  Sender: FDA-Public Use
  Company Number: None

PATIENT
  Age: 6 Year
  Sex: Female
  Weight: 18.3 kg

DRUGS (1)
  1. ONCASPAR [Suspect]

REACTIONS (2)
  - Anaphylactic reaction [None]
  - Infusion related reaction [None]
